FAERS Safety Report 6425687-3 (Version None)
Quarter: 2009Q4

REPORT INFORMATION
  Report Type: 
  Country: None (occurrence: None)
  Receive Date: 20091103
  Receipt Date: 20091021
  Transmission Date: 20100525
  Serious: Yes (Other)
  Sender: FDA-Public Use
  Company Number: PHHY2009JP26240

PATIENT
  Age: 61 Year
  Sex: Male

DRUGS (9)
  1. TEGRETOL [Suspect]
     Indication: EPILEPSY
     Dosage: 400 MG DAILY
     Route: 048
  2. RIVOTRIL [Concomitant]
     Indication: EPILEPSY
     Dosage: UNK
     Route: 048
  3. VALPROATE SODIUM [Concomitant]
     Indication: EPILEPSY
     Dosage: UNK
     Route: 048
  4. CARDENALIN [Concomitant]
     Indication: HYPERTENSION
     Dosage: 0.5 MG
     Route: 048
  5. ARTIST [Concomitant]
     Indication: HYPERTENSION
     Dosage: 10 MG
     Route: 048
  6. LASIX [Concomitant]
     Indication: HYPERTENSION
     Dosage: 40 MG
     Route: 048
  7. RENIVACE [Concomitant]
     Indication: HYPERTENSION
     Dosage: 10 MG
     Route: 048
  8. AMPICILLIN SODIUM/SULBACTAM SODIUM [Concomitant]
     Indication: BRONCHITIS
     Dosage: 1.5G
     Route: 048
     Dates: end: 20090810
  9. HICALIQ [Concomitant]
     Indication: BRONCHITIS
     Dosage: 500 ML
     Dates: end: 20090810

REACTIONS (6)
  - ALANINE AMINOTRANSFERASE INCREASED [None]
  - ASPARTATE AMINOTRANSFERASE INCREASED [None]
  - BLOOD BILIRUBIN INCREASED [None]
  - EPILEPSY [None]
  - JAUNDICE [None]
  - ROAD TRAFFIC ACCIDENT [None]
